FAERS Safety Report 7294806 (Version 2)
Quarter: 2013Q3

REPORT INFORMATION
  Report Type: Spontaneous
  Country: None (occurrence: None)
  Receive Date: 20091124
  Receipt Date: 20130715
  Transmission Date: 20140515
  Serious: Yes (Hospitalization, Other)
  Sender: FDA-Public Use
  Company Number: AUR-APL-2009-01268

PATIENT
  Age: 38 Year
  Sex: Female

DRUGS (4)
  1. STAVUDINE [Suspect]
     Indication: HIV INFECTION
  2. LAMIVUDINE [Suspect]
     Indication: HIV INFECTION
  3. EFAVIRENZ [Suspect]
     Indication: HIV INFECTION
  4. ANTITUBERCULOUS THERAPY [Concomitant]
     Indication: TUBERCULOSIS

REACTIONS (8)
  - General physical health deterioration [None]
  - Hepatomegaly [None]
  - Anaemia [None]
  - Aspartate aminotransferase increased [None]
  - Alanine aminotransferase increased [None]
  - Tuberculosis [None]
  - Lymph node tuberculosis [None]
  - Immune reconstitution inflammatory syndrome [None]
